FAERS Safety Report 15759495 (Version 1)
Quarter: 2018Q4

REPORT INFORMATION
  Report Type: Spontaneous
  Country: US (occurrence: US)
  Receive Date: 20181226
  Receipt Date: 20181226
  Transmission Date: 20190205
  Serious: Yes (Hospitalization, Other)
  Sender: FDA-Public Use
  Company Number: PHEH2018US051081

PATIENT
  Age: 15 Year
  Sex: Male

DRUGS (1)
  1. KYMRIAH [Suspect]
     Active Substance: TISAGENLECLEUCEL
     Indication: LEUKAEMIA
     Route: 065

REACTIONS (7)
  - Leukaemia [Not Recovered/Not Resolved]
  - Respiratory disorder [Unknown]
  - Disease progression [Not Recovered/Not Resolved]
  - Cytokine release syndrome [Not Recovered/Not Resolved]
  - Neurotoxicity [Not Recovered/Not Resolved]
  - Pyrexia [Unknown]
  - Lung infection [Unknown]
